FAERS Safety Report 20349523 (Version 1)
Quarter: 2022Q1

REPORT INFORMATION
  Report Type: Spontaneous
  Country: US (occurrence: US)
  Receive Date: 20220119
  Receipt Date: 20220119
  Transmission Date: 20220423
  Serious: No
  Sender: FDA-Public Use
  Company Number: US-AMGEN-USASP2022003650

PATIENT
  Sex: Female

DRUGS (2)
  1. BLINCYTO [Suspect]
     Active Substance: BLINATUMOMAB
     Indication: Acute lymphocytic leukaemia
     Dosage: UNK
     Route: 065
     Dates: start: 20210129
  2. BLINCYTO [Suspect]
     Active Substance: BLINATUMOMAB
     Dosage: 21.25 MICROGRAM (WASTED DOSE)
     Route: 065

REACTIONS (1)
  - SARS-CoV-2 test positive [Unknown]
